FAERS Safety Report 6379255 (Version 10)
Quarter: 2017Q2

REPORT INFORMATION
  Report Type: Spontaneous
  Country: DE (occurrence: DE)
  Receive Date: 20070809
  Receipt Date: 20170428
  Transmission Date: 20170830
  Serious: Yes (Disabling, Other)
  Sender: FDA-Public Use
  Company Number: DE-PURDUE-DEU_2007_0003534

PATIENT
  Age: 47 Year
  Sex: Male

DRUGS (4)
  1. BELOC ZOK [Concomitant]
     Active Substance: METOPROLOL SUCCINATE
  2. SYNEUDON [Concomitant]
     Active Substance: AMITRIPTYLINE HYDROCHLORIDE
  3. OXYGESIC [Suspect]
     Active Substance: OXYCODONE
     Indication: BACK PAIN
     Dosage: 10 MG, TID
     Route: 048
     Dates: start: 200511, end: 200610
  4. KATADOLON                          /00890102/ [Concomitant]
     Active Substance: FLUPIRTINE

REACTIONS (7)
  - Gingivitis [Recovered/Resolved]
  - Dental caries [Not Recovered/Not Resolved]
  - Medical device pain [Not Recovered/Not Resolved]
  - Tooth loss [Not Recovered/Not Resolved]
  - Neuritis [Recovered/Resolved]
  - Bone atrophy [Not Recovered/Not Resolved]
  - Device breakage [Not Recovered/Not Resolved]

NARRATIVE: CASE EVENT DATE: 200608
